FAERS Safety Report 10024085 (Version 4)
Quarter: 2014Q2

REPORT INFORMATION
  Report Type: Spontaneous
  Country: US (occurrence: US)
  Receive Date: 20140320
  Receipt Date: 20140513
  Transmission Date: 20141212
  Serious: No
  Sender: FDA-Public Use
  Company Number: US-009507513-1403USA006553

PATIENT
  Age: 27 Year
  Sex: Female
  Weight: 125.17 kg

DRUGS (5)
  1. NUVARING [Suspect]
     Indication: HORMONE THERAPY
     Dosage: UNK
     Route: 067
     Dates: start: 20140223
  2. FLEXERIL [Concomitant]
  3. OXYCODONE [Concomitant]
  4. HYDROCODONE [Concomitant]
  5. LEXAPRO [Concomitant]

REACTIONS (2)
  - Vulvovaginal pain [Recovered/Resolved]
  - Device breakage [Unknown]
